FAERS Safety Report 18554714 (Version 1)
Quarter: 2020Q4

REPORT INFORMATION
  Report Type: Other
  Country: SK (occurrence: SK)
  Receive Date: 20201127
  Receipt Date: 20201127
  Transmission Date: 20210114
  Serious: Yes (Other)
  Sender: FDA-Public Use
  Company Number: SK-ROCHE-2719917

PATIENT
  Age: 39 Year
  Sex: Female
  Weight: 140 kg

DRUGS (10)
  1. METHOTREXATE. [Concomitant]
     Active Substance: METHOTREXATE
  2. METHOTREXATE. [Concomitant]
     Active Substance: METHOTREXATE
     Dosage: CO-ADMINISTERED
  3. GOLIMUMAB [Suspect]
     Active Substance: GOLIMUMAB
     Indication: RHEUMATOID ARTHRITIS
     Route: 058
  4. METHOTREXATE. [Concomitant]
     Active Substance: METHOTREXATE
  5. CERTOLIZUMAB PEGOL [Suspect]
     Active Substance: CERTOLIZUMAB PEGOL
     Indication: RHEUMATOID ARTHRITIS
     Route: 058
     Dates: start: 201503
  6. BARICITINIB. [Concomitant]
     Active Substance: BARICITINIB
     Route: 048
     Dates: start: 201906
  7. PREDNISOLONE. [Concomitant]
     Active Substance: PREDNISOLONE
  8. TOCILIZUMAB. [Suspect]
     Active Substance: TOCILIZUMAB
     Indication: RHEUMATOID ARTHRITIS
     Route: 042
  9. PREDNISOLONE. [Concomitant]
     Active Substance: PREDNISOLONE
  10. TOCILIZUMAB. [Suspect]
     Active Substance: TOCILIZUMAB
     Indication: RHEUMATOID ARTHRITIS
     Route: 058

REACTIONS (3)
  - Eosinophilia [Recovering/Resolving]
  - Hypereosinophilic syndrome [Recovering/Resolving]
  - Drug ineffective [Unknown]
